FAERS Safety Report 10913840 (Version 1)
Quarter: 2015Q1

REPORT INFORMATION
  Report Type: Spontaneous
  Country: US (occurrence: US)
  Receive Date: 20150313
  Receipt Date: 20150313
  Transmission Date: 20150721
  Serious: No
  Sender: FDA-Public Use
  Company Number: US-ASTRAZENECA-2014SE60863

PATIENT
  Age: 52 Year
  Sex: Female
  Weight: 127 kg

DRUGS (8)
  1. CLARITIN [Concomitant]
     Active Substance: LORATADINE
  2. ONGLYZA [Suspect]
     Active Substance: SAXAGLIPTIN HYDROCHLORIDE
     Indication: TYPE 2 DIABETES MELLITUS
     Route: 048
     Dates: end: 20140803
  3. HYDROCHLOROTHIAZIDE. [Concomitant]
     Active Substance: HYDROCHLOROTHIAZIDE
  4. TRAMADOL [Concomitant]
     Active Substance: TRAMADOL
  5. LISINOPRIL. [Suspect]
     Active Substance: LISINOPRIL
     Indication: BLOOD PRESSURE INCREASED
     Route: 048
  6. VICTOZA [Concomitant]
     Active Substance: LIRAGLUTIDE
  7. NAPROXEN. [Concomitant]
     Active Substance: NAPROXEN
  8. ONGLYZA [Suspect]
     Active Substance: SAXAGLIPTIN HYDROCHLORIDE
     Indication: TYPE 2 DIABETES MELLITUS
     Dosage: DAILY
     Route: 048

REACTIONS (6)
  - Pruritus [Unknown]
  - Therapeutic response unexpected [Unknown]
  - Headache [Unknown]
  - Drug dose omission [Unknown]
  - Malaise [Unknown]
  - Blood glucose decreased [Recovering/Resolving]
